FAERS Safety Report 8450084 (Version 2)
Quarter: 2013Q3

REPORT INFORMATION
  Report Type: Spontaneous
  Country: US (occurrence: None)
  Receive Date: 20120203
  Receipt Date: 20130903
  Transmission Date: 20140515
  Serious: Yes (Hospitalization)
  Sender: FDA-Public Use
  Company Number: 125231

PATIENT
  Age: 56 Year
  Sex: Male

DRUGS (1)
  1. DAUNORUBICIN HCL INJ. 20MG/4ML - BEDFORD LABS, INC. [Suspect]
     Indication: ACUTE LEUKAEMIA
     Dosage: 120MG, 1X/DAY, IV
     Route: 042
     Dates: start: 20100415, end: 20100416

REACTIONS (7)
  - Chills [None]
  - Infection [None]
  - Hyperthermia [None]
  - Blood culture positive [None]
  - Staphylococcus test positive [None]
  - Neutropenia [None]
  - Thrombocytopenia [None]
